FAERS Safety Report 6231117-7 (Version None)
Quarter: 2009Q2

REPORT INFORMATION
  Report Type: 
  Country: None (occurrence: None)
  Receive Date: 20090611
  Receipt Date: 20090526
  Transmission Date: 20091009
  Serious: Yes (Hospitalization)
  Sender: FDA-Public Use
  Company Number: 1-18623473

PATIENT
  Age: 5 Year
  Sex: Male

DRUGS (2)
  1. LEVETIRACETAM ORAL SOLUTION 100MG/ML [Suspect]
     Indication: EPILEPSY
     Dosage: ORAL
     Route: 048
  2. LAMOTRIGINE [Suspect]
     Indication: EPILEPSY
     Dosage: ORAL
     Route: 048

REACTIONS (10)
  - AGGRESSION [None]
  - ANOREXIA [None]
  - DECREASED INTEREST [None]
  - DISTURBANCE IN ATTENTION [None]
  - FATIGUE [None]
  - HYPOPHAGIA [None]
  - INITIAL INSOMNIA [None]
  - INSOMNIA [None]
  - IRRITABILITY [None]
  - MAJOR DEPRESSION [None]
